FAERS Safety Report 25566510 (Version 1)
Quarter: 2025Q3

REPORT INFORMATION
  Report Type: Spontaneous
  Country: US (occurrence: US)
  Receive Date: 20250716
  Receipt Date: 20250716
  Transmission Date: 20251021
  Serious: No
  Sender: SANOFI AVENTIS
  Company Number: US-SA-2025SA200014

PATIENT
  Sex: Female
  Weight: 80.7 kg

DRUGS (4)
  1. DUPIXENT [Suspect]
     Active Substance: DUPILUMAB
     Indication: Nasal polyps
     Dosage: 300 MG, QOW
     Route: 058
  2. PRENATAL 19 [Concomitant]
     Active Substance: .ALPHA.-TOCOPHEROL ACETATE, DL-\.BETA.-CAROTENE\ASCORBIC ACID\CALCIUM CARBONATE\CALCIUM PANTOTHENATE
  3. MAGNESIUM [Concomitant]
     Active Substance: MAGNESIUM
  4. LAMOTRIGINE E.R. [Concomitant]
     Dosage: UNK UNK, QD

REACTIONS (1)
  - Maternal exposure during pregnancy [Unknown]
